FAERS Safety Report 6994915-8 (Version None)
Quarter: 2010Q3

REPORT INFORMATION
  Report Type: 
  Country: None (occurrence: None)
  Receive Date: 20100917
  Receipt Date: 20090813
  Transmission Date: 20110219
  Serious: Yes (Other)
  Sender: FDA-Public Use
  Company Number: HQWYE451215JUN04

PATIENT
  Sex: Female

DRUGS (8)
  1. PREMPRO [Suspect]
  2. PROVERA [Suspect]
  3. ESTRACE [Suspect]
  4. ESTROGEN NOS [Suspect]
  5. ESTRADIOL [Suspect]
  6. CYCRIN [Suspect]
  7. PREMARIN [Suspect]
  8. MEDROXYPROGESTERONE ACETATE [Suspect]

REACTIONS (1)
  - BREAST CANCER [None]
